FAERS Safety Report 7460193-9 (Version None)
Quarter: 2011Q2

REPORT INFORMATION
  Report Type: 
  Country: None (occurrence: None)
  Receive Date: 20110505
  Receipt Date: 20110429
  Transmission Date: 20111010
  Serious: Yes (Hospitalization)
  Sender: FDA-Public Use
  Company Number: US-ALEXION-A201100624

PATIENT
  Sex: Male

DRUGS (1)
  1. SOLIRIS [Suspect]
     Indication: PAROXYSMAL NOCTURNAL HAEMOGLOBINURIA
     Dosage: UNK
     Route: 042

REACTIONS (7)
  - FATIGUE [None]
  - ASTHENIA [None]
  - PACKED RED BLOOD CELL TRANSFUSION [None]
  - NAUSEA [None]
  - CHILLS [None]
  - DIARRHOEA [None]
  - PYREXIA [None]
